FAERS Safety Report 15602415 (Version 1)
Quarter: 2018Q4

REPORT INFORMATION
  Report Type: Spontaneous
  Country: DE (occurrence: DE)
  Receive Date: 20181109
  Receipt Date: 20181109
  Transmission Date: 20190205
  Serious: Yes (Other)
  Sender: FDA-Public Use
  Company Number: PHHY2018DE146488

PATIENT
  Age: 22 Year
  Sex: Female

DRUGS (1)
  1. DEXAMETHASONE. [Suspect]
     Active Substance: DEXAMETHASONE
     Indication: CUSHING^S SYNDROME
     Dosage: 8 MG, TID
     Route: 065

REACTIONS (4)
  - Therapy non-responder [Unknown]
  - Product use in unapproved indication [Unknown]
  - Premature delivery [Unknown]
  - Maternal exposure during pregnancy [Unknown]
